FAERS Safety Report 7860873-7 (Version None)
Quarter: 2011Q4

REPORT INFORMATION
  Report Type: 
  Country: None (occurrence: None)
  Receive Date: 20111026
  Receipt Date: 20111018
  Transmission Date: 20120403
  Serious: Yes (Disabling, Other)
  Sender: FDA-Public Use
  Company Number: ACO_26305_2011

PATIENT
  Age: 56 Year
  Sex: Female
  Weight: 47.2 kg

DRUGS (8)
  1. AMPYRA [Suspect]
     Indication: GAIT DISTURBANCE
     Dosage: 10MG, QD,ORAL; 10MG, BID,ORAL
     Route: 048
     Dates: start: 20110720, end: 20110813
  2. AMPYRA [Suspect]
     Indication: GAIT DISTURBANCE
     Dosage: 10MG, QD,ORAL; 10MG, BID,ORAL
     Route: 048
     Dates: start: 20110713, end: 20110719
  3. SYNTHROID [Concomitant]
  4. OXYBUTYNIN [Concomitant]
  5. NEURONTIN [Concomitant]
  6. CELEBREX [Concomitant]
  7. REBIF [Concomitant]
  8. VITAMIN D [Concomitant]

REACTIONS (7)
  - MUSCULAR WEAKNESS [None]
  - NAUSEA [None]
  - URINARY TRACT INFECTION [None]
  - WHITE BLOOD CELL COUNT INCREASED [None]
  - ABASIA [None]
  - GAIT DISTURBANCE [None]
  - INAPPROPRIATE SCHEDULE OF DRUG ADMINISTRATION [None]
